FAERS Safety Report 8862550 (Version 1)
Quarter: 2012Q4

REPORT INFORMATION
  Report Type: 
  Country: US (occurrence: US)
  Receive Date: 20121026
  Receipt Date: 20121026
  Transmission Date: 20130627
  Serious: Yes (Hospitalization)
  Sender: FDA-Public Use
  Company Number: US-JNJFOC-20121009339

PATIENT
  Age: 72 Year
  Sex: Male

DRUGS (4)
  1. ZYTIGA [Suspect]
     Indication: PRODUCT USED FOR UNKNOWN INDICATION
     Route: 048
     Dates: start: 20120702
  2. ZYTIGA [Suspect]
     Indication: PRODUCT USED FOR UNKNOWN INDICATION
     Route: 048
     Dates: start: 20120717, end: 20120724
  3. PREDNISONE [Concomitant]
     Indication: PRODUCT USED FOR UNKNOWN INDICATION
     Route: 065
     Dates: start: 20120702
  4. LUPRON [Concomitant]

REACTIONS (8)
  - Heart rate increased [Unknown]
  - Fall [Unknown]
  - Dyspnoea [Unknown]
  - Oedema peripheral [Unknown]
  - Pneumothorax traumatic [Unknown]
  - Pulmonary thrombosis [Unknown]
  - Rib fracture [Unknown]
  - Incorrect dose administered [Unknown]
